FAERS Safety Report 18485220 (Version 1)
Quarter: 2020Q4

REPORT INFORMATION
  Report Type: Spontaneous
  Country: US (occurrence: US)
  Receive Date: 20201109
  Receipt Date: 20201109
  Transmission Date: 20210114
  Serious: No
  Sender: FDA-Public Use
  Company Number: None

PATIENT
  Age: 65 Year
  Sex: Male

DRUGS (22)
  1. BETAMETH DIP CRE [Concomitant]
  2. LANTUS SOLOS INJ [Concomitant]
  3. LANTUS INJ [Concomitant]
  4. CLOBETASOL OIN [Concomitant]
  5. AMOXICILLIN CAPSULE [Concomitant]
     Active Substance: AMOXICILLIN
  6. BENZOYL PER LIQ [Concomitant]
  7. HALOBETASOL OIN [Concomitant]
  8. AZELASTINE SPR [Concomitant]
  9. CYCLOBENZAPR TAB [Concomitant]
  10. DOXYCYC MONO CAP [Concomitant]
  11. AMLODIPINE [Concomitant]
     Active Substance: AMLODIPINE BESYLATE
  12. COZAAR TAB [Concomitant]
  13. EPIPEN INJ [Concomitant]
  14. BARACLUDE [Suspect]
     Active Substance: ENTECAVIR
     Indication: HEPATITIS B
     Route: 048
     Dates: start: 20150603
  15. ALLOPURINOL TABLET [Concomitant]
     Active Substance: ALLOPURINOL
  16. CEPHALEXIN CAP [Concomitant]
  17. DIAZEPAM TAB [Concomitant]
  18. DOXYCYCL HYC CAP [Concomitant]
  19. BARACLUDE [Suspect]
     Active Substance: ENTECAVIR
     Indication: CHRONIC HEPATITIS B
     Route: 048
     Dates: start: 20150603
  20. CLINDAMYCIN SOL [Concomitant]
  21. LEVOCETIRIZI TAB [Concomitant]
  22. LEVOFLOXACIN TAB [Concomitant]

REACTIONS (1)
  - Liver transplant rejection [None]

NARRATIVE: CASE EVENT DATE: 20201009
